FAERS Safety Report 5590739-7 (Version None)
Quarter: 2008Q1

REPORT INFORMATION
  Report Type: 
  Country: None (occurrence: None)
  Receive Date: 20080114
  Receipt Date: 20080102
  Transmission Date: 20080703
  Serious: Yes (Other)
  Sender: FDA-Public Use
  Company Number: US-PFIZER INC-2008000937

PATIENT
  Sex: Female
  Weight: 75.8 kg

DRUGS (9)
  1. LYRICA [Suspect]
     Indication: NEURALGIA
  2. ALEVE [Suspect]
     Indication: MYALGIA
     Dates: start: 20070101, end: 20070101
  3. ALEVE [Suspect]
     Indication: ARTHRALGIA
  4. OXYCONTIN [Concomitant]
  5. LORAZEPAM [Concomitant]
  6. SOMA [Concomitant]
  7. TRAZODONE HCL [Concomitant]
  8. ADVIL LIQUI-GELS [Concomitant]
  9. ACETYLSALICYLIC ACID SRT [Concomitant]
     Indication: HEADACHE

REACTIONS (17)
  - ARTHRALGIA [None]
  - BURNING SENSATION [None]
  - CORRECTIVE LENS USER [None]
  - DIZZINESS [None]
  - DRUG INEFFECTIVE [None]
  - GENERAL PHYSICAL HEALTH DETERIORATION [None]
  - HEADACHE [None]
  - MENTAL STATUS CHANGES [None]
  - MOOD ALTERED [None]
  - MUSCULAR WEAKNESS [None]
  - MYALGIA [None]
  - MYOPIA [None]
  - PAIN [None]
  - SOMNOLENCE [None]
  - VISION BLURRED [None]
  - VISUAL DISTURBANCE [None]
  - WEST NILE VIRAL INFECTION [None]
